FAERS Safety Report 7301553-6 (Version None)
Quarter: 2011Q1

REPORT INFORMATION
  Report Type: 
  Country: None (occurrence: None)
  Receive Date: 20110218
  Receipt Date: 20110215
  Transmission Date: 20110831
  Serious: Yes (Other)
  Sender: FDA-Public Use
  Company Number: GB-PFIZER INC-2011033999

PATIENT
  Age: 6 Year
  Sex: Male
  Weight: 18.2 kg

DRUGS (14)
  1. PIPERACILLIN AND TAZOBACTAM [Suspect]
     Indication: FEBRILE NEUTROPENIA
     Dosage: 1.6 G, UNK
     Route: 042
     Dates: start: 20110119, end: 20110121
  2. AMLODIPINE [Concomitant]
  3. CALCIUM CARBONATE [Concomitant]
  4. SYTRON [Concomitant]
  5. ACETYLSALICYLIC ACID [Concomitant]
  6. SODIUM BICARBONATE [Concomitant]
  7. AZATHIOPRINE [Concomitant]
  8. EPOETIN BETA [Concomitant]
  9. PREDNISOLONE [Concomitant]
  10. TACROLIMUS [Interacting]
  11. ALFACALCIDOL [Concomitant]
  12. RANITIDINE [Concomitant]
  13. TRIMETHOPRIM [Concomitant]
  14. SEPTRIN [Concomitant]

REACTIONS (3)
  - NEPHROPATHY TOXIC [None]
  - DRUG LEVEL INCREASED [None]
  - DRUG INTERACTION [None]
